FAERS Safety Report 9926656 (Version 1)
Quarter: 2014Q1

REPORT INFORMATION
  Report Type: Spontaneous
  Country: US (occurrence: US)
  Receive Date: 20140226
  Receipt Date: 20140226
  Transmission Date: 20141002
  Serious: No
  Sender: FDA-Public Use
  Company Number: US-AMGEN-USASP2013077342

PATIENT
  Age: 53 Year
  Sex: Female
  Weight: 104.31 kg

DRUGS (8)
  1. ENBREL [Suspect]
     Indication: PRODUCT USED FOR UNKNOWN INDICATION
     Dosage: 50 MG, QWK
     Route: 058
     Dates: start: 2013
  2. LEFLUNOMIDE [Concomitant]
     Dosage: 10 MG, UNK
  3. SYNTHROID [Concomitant]
     Dosage: 100 MUG, UNK
  4. ATORVASTATIN [Concomitant]
     Dosage: 10 MG, UNK
  5. PRISTIQ [Concomitant]
     Dosage: 50 MG, UNK
  6. VITAMIN B12                        /00056201/ [Concomitant]
     Dosage: 1000 TR, UNK
  7. IBUPROFEN [Concomitant]
     Dosage: 400 MG, UNK
  8. IMMUNOGLOBULIN HUMAN [Concomitant]
     Dosage: UNK

REACTIONS (1)
  - Injection site pain [Unknown]
